FAERS Safety Report 7757871-0 (Version None)
Quarter: 2011Q3

REPORT INFORMATION
  Report Type: 
  Country: None (occurrence: None)
  Receive Date: 20110918
  Receipt Date: 20110906
  Transmission Date: 20111222
  Serious: Yes (Death)
  Sender: FDA-Public Use
  Company Number: CA-BRISTOL-MYERS SQUIBB COMPANY-16063331

PATIENT

DRUGS (4)
  1. CYTARABINE [Suspect]
     Indication: BRAIN NEOPLASM
     Route: 042
  2. CARMUSTINE [Suspect]
     Indication: BRAIN NEOPLASM
     Route: 042
  3. CISPLATIN [Suspect]
     Indication: BRAIN NEOPLASM
     Route: 042
  4. TENIPOSIDE [Suspect]
     Indication: BRAIN NEOPLASM
     Route: 042

REACTIONS (1)
  - NEUTROPENIC SEPSIS [None]
